FAERS Safety Report 25633171 (Version 1)
Quarter: 2025Q3

REPORT INFORMATION
  Report Type: Report from Study
  Country: US (occurrence: US)
  Receive Date: 20250801
  Receipt Date: 20250801
  Transmission Date: 20251021
  Serious: Yes (Other)
  Sender: RANBAXY
  Company Number: US-SUN PHARMACEUTICAL INDUSTRIES LTD-2025R1-520395

PATIENT
  Age: 60 Year
  Sex: Female

DRUGS (3)
  1. TADALAFIL [Suspect]
     Active Substance: TADALAFIL
     Indication: Pulmonary veno-occlusive disease
     Route: 042
  2. TREPROSTINIL [Suspect]
     Active Substance: TREPROSTINIL
     Indication: Pulmonary veno-occlusive disease
     Route: 065
  3. MACITENTAN [Suspect]
     Active Substance: MACITENTAN
     Indication: Pulmonary veno-occlusive disease
     Route: 065

REACTIONS (2)
  - Disease progression [Unknown]
  - Hypoxia [Unknown]
